FAERS Safety Report 4331387-6 (Version None)
Quarter: 2004Q1

REPORT INFORMATION
  Report Type: 
  Country: None (occurrence: None)
  Receive Date: 20040329
  Receipt Date: 20040315
  Transmission Date: 20041129
  Serious: Yes (Hospitalization, Other)
  Sender: FDA-Public Use
  Company Number: 2004012894

PATIENT
  Age: 48 Year
  Sex: Male
  Weight: 48.5349 kg

DRUGS (1)
  1. DILANTIN [Suspect]
     Indication: CONVULSION

REACTIONS (6)
  - ANTICONVULSANT DRUG LEVEL INCREASED [None]
  - APHAGIA [None]
  - DEHYDRATION [None]
  - DRUG LEVEL FLUCTUATING [None]
  - HEPATIC FUNCTION ABNORMAL [None]
  - PHARMACEUTICAL PRODUCT COMPLAINT [None]
